FAERS Safety Report 25976924 (Version 1)
Quarter: 2025Q4

REPORT INFORMATION
  Report Type: Spontaneous
  Country: US (occurrence: US)
  Receive Date: 20251030
  Receipt Date: 20251030
  Transmission Date: 20260117
  Serious: No
  Sender: BRISTOL-MYERS SQUIBB COMPANY
  Company Number: US-BRISTOL-MYERS SQUIBB COMPANY-2025-146135

PATIENT
  Sex: Male

DRUGS (1)
  1. TROSPIUM CHLORIDE\XANOMELINE TARTRATE [Suspect]
     Active Substance: TROSPIUM CHLORIDE\XANOMELINE TARTRATE
     Indication: Schizophrenia

REACTIONS (4)
  - Dyspepsia [Unknown]
  - Hepatic enzyme increased [Unknown]
  - Nausea [Unknown]
  - Liver function test increased [Unknown]
